FAERS Safety Report 22400258 (Version 1)
Quarter: 2023Q2

REPORT INFORMATION
  Report Type: Spontaneous
  Country: US (occurrence: None)
  Receive Date: 20230601
  Receipt Date: 20230601
  Transmission Date: 20230722
  Serious: Yes (Other)
  Sender: FDA-Public Use
  Company Number: None

PATIENT
  Age: 62 Year
  Sex: Female
  Weight: 69.75 kg

DRUGS (12)
  1. PAXLOVID [Suspect]
     Active Substance: NIRMATRELVIR\RITONAVIR
     Indication: COVID-19
     Dosage: OTHER QUANTITY : 5 CAPSULE(S);?
     Dates: start: 20230423, end: 20230428
  2. Estrogen patches [Concomitant]
  3. PROGESTERONE [Concomitant]
     Active Substance: PROGESTERONE
  4. Sanexas electrical treatments [Concomitant]
  5. Innovo electric shorts [Concomitant]
  6. VITAMIN D NOS [Concomitant]
     Active Substance: VITAMIN D NOS
  7. lions mane mushroom [Concomitant]
  8. VITAMIN B12 [Concomitant]
     Active Substance: CYANOCOBALAMIN
  9. CALCIUM [Concomitant]
     Active Substance: CALCIUM
  10. OMEGA 3 [Concomitant]
     Active Substance: CAPSAICIN
  11. BIOCELL COLLAGEN [Concomitant]
  12. UBIQUINOL [Concomitant]
     Active Substance: UBIQUINOL

REACTIONS (4)
  - COVID-19 [None]
  - Sinus pain [None]
  - Ear pain [None]
  - Sinus headache [None]

NARRATIVE: CASE EVENT DATE: 20230501
